FAERS Safety Report 15836882 (Version 3)
Quarter: 2019Q3

REPORT INFORMATION
  Report Type: Spontaneous
  Country: US (occurrence: US)
  Receive Date: 20190117
  Receipt Date: 20190809
  Transmission Date: 20191004
  Serious: Yes (Other)
  Sender: FDA-Public Use
  Company Number: US-TEVA-2019-US-996453

PATIENT
  Sex: Male

DRUGS (2)
  1. AMLODIPINE BESYLATE. [Suspect]
     Active Substance: AMLODIPINE BESYLATE
     Indication: HYPERTENSION
     Route: 065
  2. AMLODIPINE BESYLATE. [Suspect]
     Active Substance: AMLODIPINE BESYLATE

REACTIONS (10)
  - Blood pressure increased [Unknown]
  - Electrocardiogram abnormal [Unknown]
  - Malaise [Not Recovered/Not Resolved]
  - Visual impairment [Unknown]
  - General physical health deterioration [Unknown]
  - Headache [Unknown]
  - Recalled product administered [Unknown]
  - Cardiac disorder [Unknown]
  - Nervousness [Unknown]
  - Vision blurred [Unknown]
